FAERS Safety Report 23252912 (Version 1)
Quarter: 2023Q4

REPORT INFORMATION
  Report Type: Spontaneous
  Country: BE (occurrence: BE)
  Receive Date: 20231201
  Receipt Date: 20231201
  Transmission Date: 20240110
  Serious: Yes (Other)
  Sender: FDA-Public Use
  Company Number: None

PATIENT
  Sex: Female

DRUGS (8)
  1. LORAZEPAM [Suspect]
     Active Substance: LORAZEPAM
  2. TRAZODONE HCL [Suspect]
     Active Substance: TRAZODONE HYDROCHLORIDE
  3. XANAX [Suspect]
     Active Substance: ALPRAZOLAM
  4. OXAZEPAM [Suspect]
     Active Substance: OXAZEPAM
  5. DIAZEPAM [Suspect]
     Active Substance: DIAZEPAM
  6. LORMETAZEPAM [Suspect]
     Active Substance: LORMETAZEPAM
  7. NORTRIPTYLINE [Suspect]
     Active Substance: NORTRIPTYLINE
  8. ZOLPIDEM [Suspect]
     Active Substance: ZOLPIDEM TARTRATE

REACTIONS (3)
  - Intentional product misuse [Not Recovered/Not Resolved]
  - Pharmaceutical nomadism [Not Recovered/Not Resolved]
  - Prescription form tampering [Not Recovered/Not Resolved]
